FAERS Safety Report 8186246-8 (Version None)
Quarter: 2012Q1

REPORT INFORMATION
  Report Type: 
  Country: None (occurrence: None)
  Receive Date: 20120306
  Receipt Date: 20120302
  Transmission Date: 20120608
  Serious: No
  Sender: FDA-Public Use
  Company Number: US-PFIZER INC-2012057105

PATIENT
  Sex: Female
  Weight: 40.8 kg

DRUGS (2)
  1. PREMARIN [Suspect]
     Dosage: 1.25 MG, 2X/DAY
     Route: 048
  2. PREMARIN [Suspect]
     Indication: HORMONE THERAPY
     Dosage: 0.9MG AND 0.625MG IN THE NIGHT AND 1.25MG IN THE AFTERNOON
     Route: 048
     Dates: start: 19950101

REACTIONS (2)
  - INSOMNIA [None]
  - HOT FLUSH [None]
